FAERS Safety Report 12986431 (Version 1)
Quarter: 2016Q4

REPORT INFORMATION
  Report Type: Spontaneous
  Country: US (occurrence: US)
  Receive Date: 20161130
  Receipt Date: 20161130
  Transmission Date: 20170207
  Serious: Yes (Other)
  Sender: FDA-Public Use
  Company Number: US-BEH-ZLB/647/05/ALB(0)

PATIENT
  Age: 74 Year
  Sex: Female
  Weight: 79.38 kg

DRUGS (3)
  1. ALBUMIN (HUMAN) 5 [Suspect]
     Active Substance: ALBUMIN HUMAN
     Indication: MYASTHENIA GRAVIS
     Dosage: DAILY DOSE QUANTITY: 500, DAILY DOSE UNIT: ML
     Route: 042
     Dates: start: 19980323, end: 19980323
  2. ALBUMIN [Concomitant]
     Active Substance: ALBUMIN HUMAN
     Indication: PLASMAPHERESIS
  3. ALBUMIN (HUMAN) 5 [Suspect]
     Active Substance: ALBUMIN HUMAN
     Indication: PLASMAPHERESIS

REACTIONS (3)
  - Malaise [Recovered/Resolved]
  - Chills [Recovered/Resolved]
  - Citrate toxicity [None]

NARRATIVE: CASE EVENT DATE: 19980323
